FAERS Safety Report 12502207 (Version 2)
Quarter: 2018Q3

REPORT INFORMATION
  Report Type: Spontaneous
  Country: FR (occurrence: FR)
  Receive Date: 20160627
  Receipt Date: 20180911
  Transmission Date: 20181010
  Serious: Yes (Hospitalization, Other)
  Sender: FDA-Public Use
  Company Number: FR-GILEAD-2016-0219894

PATIENT
  Age: 51 Year
  Sex: Female

DRUGS (17)
  1. VESICARE [Concomitant]
     Active Substance: SOLIFENACIN SUCCINATE
     Dosage: 5 MG, BID
  2. DAKLINZA [Suspect]
     Active Substance: DACLATASVIR
     Indication: CHRONIC HEPATITIS C
     Dosage: 60 MG, QD
     Route: 048
     Dates: start: 20160510, end: 201608
  3. SOLIAN [Concomitant]
     Active Substance: AMISULPRIDE
     Dosage: 400 MG, BID
  4. BECLO RHINO [Concomitant]
  5. INEXIUM                            /01479302/ [Concomitant]
     Active Substance: ESOMEPRAZOLE MAGNESIUM
     Dosage: 20 MG, UNK
  6. LERCANIDIPINE [Concomitant]
     Active Substance: LERCANIDIPINE
     Dosage: 10 MG, UNK
  7. TERALITHE [Concomitant]
     Active Substance: LITHIUM CARBONATE
     Dosage: 2 DF, QD
  8. TEMESTA                            /00273201/ [Concomitant]
     Active Substance: LORAZEPAM
     Dosage: 2.5 DF, QD
  9. TITANOREINE                        /02208801/ [Concomitant]
     Dosage: 2 DF, QD
  10. SOVALDI [Suspect]
     Active Substance: SOFOSBUVIR
     Indication: CHRONIC HEPATITIS C
     Dosage: 400 MG, QD
     Route: 048
     Dates: start: 20160510, end: 201608
  11. CLOZAPINE. [Concomitant]
     Active Substance: CLOZAPINE
     Dosage: 100 MG, QD
  12. CLOZAPINE. [Concomitant]
     Active Substance: CLOZAPINE
     Dosage: 25 MG, UNK
  13. DAFALGAN [Concomitant]
     Active Substance: ACETAMINOPHEN
     Dosage: 1 G, QID
  14. DUPHALAC [Concomitant]
     Active Substance: LACTULOSE
     Dosage: 2 DF, PRN
  15. XATRAL [Concomitant]
     Active Substance: ALFUZOSIN
     Dosage: UNK
     Dates: start: 20160602
  16. GAVISCON                           /00237601/ [Concomitant]
     Active Substance: ALUMINUM HYDROXIDE\MAGNESIUM CARBONATE
     Dosage: 3 DF, QD
  17. SERETIDE [Concomitant]
     Active Substance: FLUTICASONE PROPIONATE\SALMETEROL XINAFOATE
     Dosage: 250, UNK, BID

REACTIONS (8)
  - Urinary retention [Unknown]
  - Confusional state [Recovering/Resolving]
  - Depressed mood [Not Recovered/Not Resolved]
  - Hallucination [Not Recovered/Not Resolved]
  - Rectal haemorrhage [Unknown]
  - Affective disorder [Not Recovered/Not Resolved]
  - Delusion [Not Recovered/Not Resolved]
  - Anxiety [Not Recovered/Not Resolved]

NARRATIVE: CASE EVENT DATE: 201605
